FAERS Safety Report 24827058 (Version 1)
Quarter: 2025Q1

REPORT INFORMATION
  Report Type: Spontaneous
  Country: US (occurrence: MX)
  Receive Date: 20250109
  Receipt Date: 20250109
  Transmission Date: 20250409
  Serious: Yes (Hospitalization)
  Sender: DR REDDYS
  Company Number: None

PATIENT
  Age: 48 Year
  Sex: Female

DRUGS (2)
  1. SUMATRIPTAN [Suspect]
     Active Substance: SUMATRIPTAN
     Indication: Migraine
  2. COBIMETINIB [Concomitant]
     Active Substance: COBIMETINIB
     Indication: Product used for unknown indication

REACTIONS (2)
  - Enterocolitis haemorrhagic [Unknown]
  - Colitis ischaemic [Unknown]
